FAERS Safety Report 10984365 (Version 5)
Quarter: 2021Q1

REPORT INFORMATION
  Report Type: Report from Study
  Country: US (occurrence: US)
  Receive Date: 20150403
  Receipt Date: 20210210
  Transmission Date: 20210419
  Serious: Yes (Hospitalization, Other)
  Sender: FDA-Public Use
  Company Number: US-SA-2015SA041336

PATIENT
  Age: 56 Year
  Sex: Female

DRUGS (8)
  1. SEROQUEL [Suspect]
     Active Substance: QUETIAPINE FUMARATE
     Indication: PAIN
     Dosage: UNK UNK,UNK
     Route: 065
  2. LANTUS [Concomitant]
     Active Substance: INSULIN GLARGINE
     Dosage: 100/ML VIAL
  3. TERIFLUNOMIDE. [Suspect]
     Active Substance: TERIFLUNOMIDE
     Indication: MULTIPLE SCLEROSIS
     Dosage: 14 MG,QD
     Route: 048
     Dates: start: 20150103
  4. BENZOCAINE. [Concomitant]
     Active Substance: BENZOCAINE
     Dosage: UNK UNK,UNK
     Route: 065
  5. ADVAIR HFA [Concomitant]
     Active Substance: FLUTICASONE PROPIONATE\SALMETEROL XINAFOATE
     Dosage: UNK UNK,UNK
     Route: 065
  6. GABAPENTIN. [Concomitant]
     Active Substance: GABAPENTIN
  7. TERIFLUNOMIDE. [Suspect]
     Active Substance: TERIFLUNOMIDE
     Dosage: 14 MG,QD
     Route: 048
     Dates: start: 201503
  8. SPIRIVA [Concomitant]
     Active Substance: TIOTROPIUM BROMIDE MONOHYDRATE
     Dosage: UNK UNK,UNK
     Route: 065

REACTIONS (33)
  - Jaw fracture [Unknown]
  - Unevaluable event [Unknown]
  - Pharyngeal inflammation [Unknown]
  - Muscular weakness [Not Recovered/Not Resolved]
  - Chest pain [Recovered/Resolved]
  - Multiple sclerosis relapse [Not Recovered/Not Resolved]
  - Memory impairment [Unknown]
  - Bradyphrenia [Not Recovered/Not Resolved]
  - Hypoaesthesia [Not Recovered/Not Resolved]
  - Diarrhoea [Recovered/Resolved]
  - Anger [Unknown]
  - Product dose omission issue [Unknown]
  - Dehydration [Recovered/Resolved]
  - Ear pain [Recovering/Resolving]
  - Muscle twitching [Not Recovered/Not Resolved]
  - Balance disorder [Unknown]
  - Fatigue [Not Recovered/Not Resolved]
  - Chronic obstructive pulmonary disease [Unknown]
  - Emotional disorder [Unknown]
  - Pain in extremity [Unknown]
  - Nausea [Not Recovered/Not Resolved]
  - Angina unstable [Unknown]
  - Pain in jaw [Not Recovered/Not Resolved]
  - Parotid gland enlargement [Unknown]
  - Paraesthesia [Unknown]
  - Tremor [Not Recovered/Not Resolved]
  - Enzyme level abnormal [Unknown]
  - Pain [Not Recovered/Not Resolved]
  - Hyperhidrosis [Recovered/Resolved]
  - Vomiting [Recovered/Resolved]
  - Limb operation [Unknown]
  - Vision blurred [Not Recovered/Not Resolved]
  - Burning sensation [Not Recovered/Not Resolved]

NARRATIVE: CASE EVENT DATE: 2015
